FAERS Safety Report 5808007-4 (Version None)
Quarter: 2008Q3

REPORT INFORMATION
  Report Type: 
  Country: None (occurrence: None)
  Receive Date: 20080711
  Receipt Date: 20080704
  Transmission Date: 20090109
  Serious: Yes (Death, Other)
  Sender: FDA-Public Use
  Company Number: JP-ABBOTT-08P-087-0434290-00

PATIENT
  Age: 75 Year
  Sex: Male

DRUGS (3)
  1. LEUPROLIDE ACETATE [Suspect]
     Indication: PROSTATE CANCER STAGE II
     Route: 058
     Dates: start: 20060922, end: 20070309
  2. LEUPROLIDE ACETATE [Suspect]
     Route: 058
     Dates: start: 20060626, end: 20060821
  3. BICALUTAMIDE [Concomitant]
     Indication: PROSTATE CANCER STAGE II
     Route: 048
     Dates: start: 20070309, end: 20070327

REACTIONS (2)
  - CARDIO-RESPIRATORY ARREST [None]
  - FACE OEDEMA [None]
